FAERS Safety Report 4518818-3 (Version None)
Quarter: 2004Q4

REPORT INFORMATION
  Report Type: 
  Country: None (occurrence: None)
  Receive Date: 20041206
  Receipt Date: 20041122
  Transmission Date: 20050328
  Serious: Yes (Other)
  Sender: FDA-Public Use
  Company Number: US-JNJFOC-20041105919

PATIENT
  Sex: Female
  Weight: 54.43 kg

DRUGS (5)
  1. REMICADE [Suspect]
     Route: 042
  2. REMICADE [Suspect]
     Indication: RHEUMATOID ARTHRITIS
     Route: 042
  3. SULFASALAZINE [Concomitant]
     Dates: start: 20041111
  4. METHOTREXATE [Concomitant]
     Dates: start: 19860101
  5. PLAQUENIL [Concomitant]
     Dates: start: 20041111

REACTIONS (1)
  - TUBERCULOSIS [None]
